FAERS Safety Report 5246733-9 (Version None)
Quarter: 2007Q1

REPORT INFORMATION
  Report Type: 
  Country: None (occurrence: None)
  Receive Date: 20070220
  Receipt Date: 20070209
  Transmission Date: 20070707
  Serious: Yes (Hospitalization, Other)
  Sender: FDA-Public Use
  Company Number: 2007PV027660

PATIENT
  Age: 65 Year
  Sex: Male
  Weight: 99.7913 kg

DRUGS (10)
  1. BYETTA [Suspect]
     Indication: DIABETES MELLITUS NON-INSULIN-DEPENDENT
     Dosage: 5 MCG; BID; SC
     Route: 058
     Dates: start: 20060309, end: 20060901
  2. PIOGLITAZONE [Concomitant]
  3. METFORMIN HCL [Concomitant]
  4. GLYBURIDE [Concomitant]
  5. IRBESARTAN [Concomitant]
  6. ATENOLOL [Concomitant]
  7. ATORVASTATIN [Concomitant]
  8. VIAGRA [Concomitant]
  9. AMLODIPINE [Concomitant]
  10. CLONIDINE [Concomitant]

REACTIONS (4)
  - CONDITION AGGRAVATED [None]
  - GASTROOESOPHAGEAL REFLUX DISEASE [None]
  - METASTASES TO LYMPH NODES [None]
  - OESOPHAGEAL ADENOCARCINOMA [None]
